FAERS Safety Report 7607093-9 (Version None)
Quarter: 2011Q3

REPORT INFORMATION
  Report Type: 
  Country: None (occurrence: None)
  Receive Date: 20110713
  Receipt Date: 20110630
  Transmission Date: 20111222
  Serious: Yes (Other)
  Sender: FDA-Public Use
  Company Number: DE-UCBSA-036550

PATIENT
  Age: 25 Year
  Sex: Female
  Weight: 70 kg

DRUGS (2)
  1. FOLSAEURE [Concomitant]
     Indication: PROPHYLAXIS OF NEURAL TUBE DEFECT
     Dosage: 5 MG /DAY
     Dates: start: 20100415, end: 20101022
  2. KEPPRA [Suspect]
     Indication: EPILEPSY
     Route: 048

REACTIONS (2)
  - PROLONGED PREGNANCY [None]
  - MATERNAL EXPOSURE DURING PREGNANCY [None]
